FAERS Safety Report 18349664 (Version 2)
Quarter: 2021Q2

REPORT INFORMATION
  Report Type: Spontaneous
  Country: US (occurrence: US)
  Receive Date: 20201006
  Receipt Date: 20210630
  Transmission Date: 20210717
  Serious: Yes (Hospitalization, Other)
  Sender: FDA-Public Use
  Company Number: US-ASTRAZENECA-2020SF27430

PATIENT
  Age: 18809 Day
  Sex: Male
  Weight: 122.5 kg

DRUGS (35)
  1. FARXIGA [Suspect]
     Active Substance: DAPAGLIFLOZIN PROPANEDIOL
     Indication: TYPE 2 DIABETES MELLITUS
     Route: 048
     Dates: start: 201708, end: 20181003
  2. METHOCARBAMOL. [Concomitant]
     Active Substance: METHOCARBAMOL
  3. FUROSEMIDE. [Concomitant]
     Active Substance: FUROSEMIDE
  4. HUMALOG [Concomitant]
     Active Substance: INSULIN LISPRO
  5. INDOMETHACIN. [Concomitant]
     Active Substance: INDOMETHACIN
  6. FARXIGA [Suspect]
     Active Substance: DAPAGLIFLOZIN PROPANEDIOL
     Indication: WEIGHT DECREASED
     Route: 048
     Dates: start: 201708, end: 20181003
  7. LINEZOLID. [Concomitant]
     Active Substance: LINEZOLID
  8. ATORVASTATIN [Concomitant]
     Active Substance: ATORVASTATIN
  9. DOXYCYCLINE HYCLATE. [Concomitant]
     Active Substance: DOXYCYCLINE HYCLATE
  10. VANCOMYCIN [Concomitant]
     Active Substance: VANCOMYCIN
  11. NAPROXEN. [Concomitant]
     Active Substance: NAPROXEN
  12. OMEPRAZOLE. [Concomitant]
     Active Substance: OMEPRAZOLE
  13. SERTRALINE [Concomitant]
     Active Substance: SERTRALINE HYDROCHLORIDE
  14. PRAZOSIN. [Concomitant]
     Active Substance: PRAZOSIN
  15. DEMEROL [Concomitant]
     Active Substance: MEPERIDINE HYDROCHLORIDE
  16. AUGMENTIN [Concomitant]
     Active Substance: AMOXICILLIN\CLAVULANATE POTASSIUM
  17. FLUOXETINE [Concomitant]
     Active Substance: FLUOXETINE HYDROCHLORIDE
  18. HYDROCODONE/ACETAMINOPHEN [Concomitant]
     Active Substance: ACETAMINOPHEN\HYDROCODONE
  19. METFORMIN [Concomitant]
     Active Substance: METFORMIN HYDROCHLORIDE
  20. ZETIA [Concomitant]
     Active Substance: EZETIMIBE
  21. LANTUS [Concomitant]
     Active Substance: INSULIN GLARGINE
  22. COLACE [Concomitant]
     Active Substance: DOCUSATE SODIUM
  23. ZOLOFT [Concomitant]
     Active Substance: SERTRALINE HYDROCHLORIDE
  24. FARXIGA [Suspect]
     Active Substance: DAPAGLIFLOZIN PROPANEDIOL
     Indication: BLOOD PRESSURE DECREASED
     Route: 048
     Dates: start: 201708, end: 20181003
  25. ZOSYN [Concomitant]
     Active Substance: PIPERACILLIN SODIUM\TAZOBACTAM SODIUM
  26. OXYCODONE/ACETAMINOPHEN [Concomitant]
     Active Substance: ACETAMINOPHEN\OXYCODONE HYDROCHLORIDE
  27. LISINOPRIL. [Concomitant]
     Active Substance: LISINOPRIL
  28. MORPHINE [Concomitant]
     Active Substance: MORPHINE
  29. BACTRIM [Concomitant]
     Active Substance: SULFAMETHOXAZOLE\TRIMETHOPRIM
  30. TRADJENTA [Concomitant]
     Active Substance: LINAGLIPTIN
  31. GABAPENTIN. [Concomitant]
     Active Substance: GABAPENTIN
  32. BYDUREON [Concomitant]
     Active Substance: EXENATIDE
  33. CHANTIX [Concomitant]
     Active Substance: VARENICLINE TARTRATE
  34. ALOGLIPTIN. [Concomitant]
     Active Substance: ALOGLIPTIN
  35. PERCOCET [Concomitant]
     Active Substance: ACETAMINOPHEN\OXYCODONE HYDROCHLORIDE

REACTIONS (14)
  - Cellulitis [Unknown]
  - Scrotal gangrene [Unknown]
  - Fournier^s gangrene [Unknown]
  - Scrotal swelling [Unknown]
  - Perirectal abscess [Unknown]
  - Scrotal infection [Unknown]
  - Necrotising soft tissue infection [Unknown]
  - Abscess limb [Unknown]
  - Scrotal pain [Unknown]
  - Groin abscess [Unknown]
  - Pyrexia [Unknown]
  - Erythema [Unknown]
  - Cellulitis of male external genital organ [Unknown]
  - Scrotal abscess [Unknown]

NARRATIVE: CASE EVENT DATE: 20180725
